FAERS Safety Report 11209005 (Version 1)
Quarter: 2015Q2

REPORT INFORMATION
  Report Type: Spontaneous
  Country: US (occurrence: None)
  Receive Date: 20150619
  Receipt Date: 20150619
  Transmission Date: 20150821
  Serious: Yes (Death, Hospitalization)
  Sender: FDA-Public Use
  Company Number: None

PATIENT
  Age: 73 Year
  Sex: Male
  Weight: 106.14 kg

DRUGS (6)
  1. ALLOPURINOL. [Concomitant]
     Active Substance: ALLOPURINOL
  2. EXJADE [Suspect]
     Active Substance: DEFERASIROX
     Indication: IRON OVERLOAD
     Route: 048
     Dates: start: 20150210, end: 20150504
  3. HYDROCHLOROTHIAZIDE. [Concomitant]
     Active Substance: HYDROCHLOROTHIAZIDE
  4. EXJADE [Concomitant]
     Active Substance: DEFERASIROX
  5. COLCRYS [Concomitant]
     Active Substance: COLCHICINE
  6. LISINOPRIL. [Concomitant]
     Active Substance: LISINOPRIL

REACTIONS (10)
  - Diarrhoea [None]
  - Vomiting [None]
  - Decreased appetite [None]
  - Renal impairment [None]
  - Bile duct stone [None]
  - Cholelithiasis [None]
  - Nausea [None]
  - Hepatic failure [None]
  - Musculoskeletal chest pain [None]
  - Intestinal obstruction [None]

NARRATIVE: CASE EVENT DATE: 20150519
